FAERS Safety Report 4994330-2 (Version None)
Quarter: 2006Q1

REPORT INFORMATION
  Report Type: 
  Country: None (occurrence: None)
  Receive Date: 20060314
  Receipt Date: 20050808
  Transmission Date: 20060701
  Serious: Yes (Other)
  Sender: FDA-Public Use
  Company Number: 200512559BCC

PATIENT
  Age: 49 Year
  Sex: Female
  Weight: 86.637 kg

DRUGS (2)
  1. ALEVE (CAPLET) [Suspect]
     Indication: BACK INJURY
     Dosage: 220 MG, ONCE, ORAL
     Route: 048
     Dates: start: 20050526
  2. ALEVE (CAPLET) [Suspect]
     Indication: NECK INJURY
     Dosage: 220 MG, ONCE, ORAL
     Route: 048
     Dates: start: 20050526

REACTIONS (4)
  - HAEMATOCHEZIA [None]
  - RASH MACULAR [None]
  - SKIN EXFOLIATION [None]
  - URTICARIA [None]
